FAERS Safety Report 22109473 (Version 1)
Quarter: 2023Q1

REPORT INFORMATION
  Report Type: Spontaneous
  Country: US (occurrence: None)
  Receive Date: 20230316
  Receipt Date: 20230316
  Transmission Date: 20230417
  Serious: No
  Sender: FDA-Public Use
  Company Number: None

PATIENT
  Age: 67 Year
  Sex: Male
  Weight: 74.39 kg

DRUGS (1)
  1. ORENCIA [Suspect]
     Active Substance: ABATACEPT
     Indication: Rheumatoid arthritis
     Dosage: INFUSE  750MG INTRAVENOUSLY EVERY 4 WEEKS AS DIRECTED.     ?
     Route: 042
     Dates: start: 202210

REACTIONS (3)
  - Pneumonia [None]
  - Influenza [None]
  - COVID-19 [None]
